FAERS Safety Report 6226481-9 (Version None)
Quarter: 2009Q2

REPORT INFORMATION
  Report Type: 
  Country: None (occurrence: None)
  Receive Date: 20090612
  Receipt Date: 20090513
  Transmission Date: 20091009
  Serious: No
  Sender: FDA-Public Use
  Company Number: US-ABBOTT-09P-163-0573194-00

PATIENT
  Sex: Male

DRUGS (4)
  1. HUMIRA [Suspect]
     Indication: CROHN'S DISEASE
     Dosage: (LOADING DOSE 4 PENS)
     Route: 058
     Dates: start: 20090501, end: 20090501
  2. HUMIRA [Suspect]
     Dates: end: 20090513
  3. ENTOCORT EC [Concomitant]
     Indication: CROHN'S DISEASE
     Route: 048
  4. ASACOL [Concomitant]
     Indication: CROHN'S DISEASE
     Route: 048

REACTIONS (5)
  - EYE PAIN [None]
  - FEELING HOT [None]
  - HEADACHE [None]
  - PAIN [None]
  - RASH MACULAR [None]
